FAERS Safety Report 9164614 (Version 1)
Quarter: 2013Q1

REPORT INFORMATION
  Report Type: Spontaneous
  Country: US (occurrence: US)
  Receive Date: 20130315
  Receipt Date: 20130315
  Transmission Date: 20140127
  Serious: Yes (Hospitalization)
  Sender: FDA-Public Use
  Company Number: US-JNJFOC-20130306572

PATIENT
  Age: 62 Year
  Sex: Female

DRUGS (2)
  1. NUCYNTA IR [Suspect]
     Indication: PAIN
     Dosage: 1-2 TABLETS EVERY 4-6 HOURS AS NEEDED
     Route: 048
     Dates: start: 2013, end: 20130301
  2. CYMBALTA [Concomitant]
     Route: 065

REACTIONS (4)
  - Serotonin syndrome [Recovered/Resolved]
  - Feeling jittery [Recovered/Resolved]
  - Anxiety [Recovered/Resolved]
  - Treatment noncompliance [Unknown]
